FAERS Safety Report 18213904 (Version 1)
Quarter: 2020Q3

REPORT INFORMATION
  Report Type: Spontaneous
  Country: US (occurrence: US)
  Receive Date: 20200831
  Receipt Date: 20200831
  Transmission Date: 20201103
  Serious: Yes (Death, Other)
  Sender: FDA-Public Use
  Company Number: US-PURDUE-USA-2020-0163725

PATIENT
  Sex: Male

DRUGS (2)
  1. OXYCODONE/ ACETAMINOPHEN TABLETS [Suspect]
     Active Substance: ACETAMINOPHEN\OXYCODONE HYDROCHLORIDE
     Indication: PAIN
     Dosage: UNKNOWN
     Route: 048
  2. OXYCONTIN [Suspect]
     Active Substance: OXYCODONE HYDROCHLORIDE
     Indication: PAIN
     Dosage: UNKNOWN
     Route: 048

REACTIONS (17)
  - Surgery [Unknown]
  - Drug abuse [Unknown]
  - Apathy [Unknown]
  - Anger [Unknown]
  - Mood swings [Unknown]
  - Weight decreased [Unknown]
  - Asthenia [Unknown]
  - Pyrexia [Unknown]
  - Drug dependence [Fatal]
  - Pain [Unknown]
  - Verbal abuse [Unknown]
  - Tremor [Unknown]
  - Self esteem decreased [Unknown]
  - Emotional distress [Unknown]
  - Diarrhoea [Unknown]
  - Mental impairment [Unknown]
  - Cold sweat [Unknown]
